FAERS Safety Report 20488952 (Version 2)
Quarter: 2022Q1

REPORT INFORMATION
  Report Type: Spontaneous
  Country: US (occurrence: US)
  Receive Date: 20220218
  Receipt Date: 20220302
  Transmission Date: 20220424
  Serious: Yes (Death, Hospitalization)
  Sender: FDA-Public Use
  Company Number: US-ELI_LILLY_AND_COMPANY-US202202007680

PATIENT
  Age: 83 Year
  Sex: Male

DRUGS (1)
  1. BAMLANIVIMAB [Suspect]
     Active Substance: BAMLANIVIMAB
     Indication: COVID-19
     Dosage: UNK, UNKNOWN
     Route: 065

REACTIONS (4)
  - Guillain-Barre syndrome [Fatal]
  - Blood pressure decreased [Unknown]
  - Pneumonia [Unknown]
  - Fall [Unknown]
